FAERS Safety Report 13060311 (Version 3)
Quarter: 2017Q1

REPORT INFORMATION
  Report Type: Spontaneous
  Country: US (occurrence: US)
  Receive Date: 20161223
  Receipt Date: 20170123
  Transmission Date: 20170428
  Serious: No
  Sender: FDA-Public Use
  Company Number: US-ASTRAZENECA-2016SF31630

PATIENT
  Sex: Female

DRUGS (2)
  1. IBRANCE [Suspect]
     Active Substance: PALBOCICLIB
     Indication: BREAST CANCER FEMALE
     Route: 048
     Dates: start: 20160211
  2. FULVESTRANT [Suspect]
     Active Substance: FULVESTRANT
     Route: 030

REACTIONS (4)
  - White blood cell count decreased [Unknown]
  - Diarrhoea [Unknown]
  - Dry mouth [Unknown]
  - Fatigue [Unknown]
